FAERS Safety Report 9824923 (Version 1)
Quarter: 2014Q1

REPORT INFORMATION
  Report Type: Spontaneous
  Country: US (occurrence: US)
  Receive Date: 20140117
  Receipt Date: 20140117
  Transmission Date: 20141002
  Serious: Yes (Other)
  Sender: FDA-Public Use
  Company Number: US-AMGEN-USASP2014002114

PATIENT
  Age: 82 Year
  Sex: Female

DRUGS (6)
  1. PROLIA [Suspect]
     Indication: PRODUCT USED FOR UNKNOWN INDICATION
     Route: 065
  2. LIPITOR [Concomitant]
     Route: 065
  3. CALCIUM [Concomitant]
     Route: 065
  4. VITAMIN D                          /00107901/ [Concomitant]
     Route: 065
  5. ATENOLOL [Concomitant]
     Route: 065
  6. MULTIVITAMINS [Concomitant]
     Route: 065

REACTIONS (1)
  - Diverticulitis [Unknown]
